FAERS Safety Report 8104092-8 (Version None)
Quarter: 2012Q1

REPORT INFORMATION
  Report Type: 
  Country: None (occurrence: None)
  Receive Date: 20120130
  Receipt Date: 20120118
  Transmission Date: 20120608
  Serious: Yes (Other)
  Sender: FDA-Public Use
  Company Number: 2012AP000158

PATIENT
  Age: 64 Year
  Sex: Male

DRUGS (8)
  1. ALLOPURINOL [Concomitant]
  2. RAMIPRIL [Suspect]
     Indication: HYPERTENSION
     Dosage: 5 MG;PO;QD
     Route: 048
     Dates: start: 20111212, end: 20120105
  3. ASPIRIN [Concomitant]
  4. BISACODYL [Concomitant]
  5. NAPROXEN [Concomitant]
  6. OMEPRAZOLE [Concomitant]
  7. LISINOPRIL [Concomitant]
  8. COLCHICINE [Concomitant]

REACTIONS (2)
  - CONDITION AGGRAVATED [None]
  - GOUT [None]
